FAERS Safety Report 14904048 (Version 2)
Quarter: 2018Q2

REPORT INFORMATION
  Report Type: Spontaneous
  Country: JP (occurrence: JP)
  Receive Date: 20180516
  Receipt Date: 20180612
  Transmission Date: 20180711
  Serious: Yes (Hospitalization)
  Sender: FDA-Public Use
  Company Number: PHHY2018JP001646

PATIENT
  Age: 86 Year
  Sex: Female

DRUGS (1)
  1. RIVASTACH [Suspect]
     Active Substance: RIVASTIGMINE
     Indication: DEMENTIA ALZHEIMER^S TYPE
     Dosage: 1.9 MG QD (PATCH 2.5 (CM2), 4.5 MG) (CUT INTO HALVES)
     Route: 062

REACTIONS (2)
  - Wrong technique in product usage process [Unknown]
  - Tuberculosis [Unknown]
